FAERS Safety Report 9124738 (Version 1)
Quarter: 2013Q1

REPORT INFORMATION
  Report Type: Spontaneous
  Country: US (occurrence: US)
  Receive Date: 20130117
  Receipt Date: 20130117
  Transmission Date: 20140127
  Serious: Yes (Other)
  Sender: FDA-Public Use
  Company Number: PHEH2013US001359

PATIENT
  Sex: Female

DRUGS (1)
  1. GILENYA [Suspect]

REACTIONS (5)
  - Liver injury [Unknown]
  - Cardiac disorder [Unknown]
  - Myocardial infarction [Unknown]
  - Immunosuppression [Unknown]
  - Hepatic enzyme decreased [Unknown]
